FAERS Safety Report 18517646 (Version 3)
Quarter: 2024Q3

REPORT INFORMATION
  Report Type: Report from Study
  Country: BR (occurrence: BR)
  Receive Date: 20201118
  Receipt Date: 20240828
  Transmission Date: 20241017
  Serious: Yes (Other)
  Sender: TAKEDA
  Company Number: BR-TAKEDA-BR202002911

PATIENT
  Age: 27 Year
  Sex: Male
  Weight: 86 kg

DRUGS (5)
  1. HEMO-8R [Suspect]
     Active Substance: ANTIHEMOPHILIC FACTOR, HUMAN RECOMBINANT
     Indication: Factor VIII deficiency
     Dosage: 2000 INTERNATIONAL UNIT, 1/WEEK
     Route: 042
     Dates: start: 20161214
  2. HEMO-8R [Suspect]
     Active Substance: ANTIHEMOPHILIC FACTOR, HUMAN RECOMBINANT
     Dosage: 2000 INTERNATIONAL UNIT, 2/WEEK
     Route: 042
     Dates: start: 20200122
  3. HEMO-8R [Suspect]
     Active Substance: ANTIHEMOPHILIC FACTOR, HUMAN RECOMBINANT
     Dosage: 2000 INTERNATIONAL UNIT, 1/WEEK
     Route: 042
  4. HEMO-8R [Suspect]
     Active Substance: ANTIHEMOPHILIC FACTOR, HUMAN RECOMBINANT
     Dosage: 2000 INTERNATIONAL UNIT, 1/WEEK
     Route: 042
  5. HEMO-8R [Suspect]
     Active Substance: ANTIHEMOPHILIC FACTOR, HUMAN RECOMBINANT
     Dosage: 1500 INTERNATIONAL UNIT, 2/WEEK
     Route: 042

REACTIONS (9)
  - Haemarthrosis [Recovering/Resolving]
  - Blood urine present [Recovering/Resolving]
  - Nephrolithiasis [Recovering/Resolving]
  - Haemophilic arthropathy [Unknown]
  - Pharyngeal haemorrhage [Recovered/Resolved]
  - Anxiety [Unknown]
  - Ligament sprain [Recovering/Resolving]
  - Joint injury [Recovering/Resolving]
  - Weight decreased [Unknown]

NARRATIVE: CASE EVENT DATE: 20200101
